FAERS Safety Report 10209113 (Version 1)
Quarter: 2014Q2

REPORT INFORMATION
  Report Type: Report from Study
  Country: ES (occurrence: ES)
  Receive Date: 20140530
  Receipt Date: 20140530
  Transmission Date: 20141212
  Serious: Yes (Death)
  Sender: FDA-Public Use
  Company Number: ES-BAXTER-2014BAX028177

PATIENT
  Sex: 0

DRUGS (2)
  1. GENOXAL 1 G INYECTABLE [Suspect]
     Indication: HAEMATOLOGICAL MALIGNANCY
     Dosage: ON DAYS +3 AND +4
     Route: 065
  2. MYCOPHENOLATE [Suspect]
     Indication: HAEMATOLOGICAL MALIGNANCY
     Dosage: FROM DAY +5
     Route: 065

REACTIONS (1)
  - Recurrent cancer [Fatal]
